FAERS Safety Report 12722387 (Version 2)
Quarter: 2016Q3

REPORT INFORMATION
  Report Type: Spontaneous
  Country: BR (occurrence: BR)
  Receive Date: 20160907
  Receipt Date: 20160909
  Transmission Date: 20161109
  Serious: Yes (Other)
  Sender: FDA-Public Use
  Company Number: BR-009507513-1609BRA002606

PATIENT
  Age: 70 Year
  Sex: Female
  Weight: 72 kg

DRUGS (8)
  1. PANTOPRAZOLE [Concomitant]
     Active Substance: PANTOPRAZOLE SODIUM
     Indication: DIABETES MELLITUS
     Dosage: 1 TABLET A DAY
     Route: 048
     Dates: start: 2006
  2. CARVEDILOL. [Concomitant]
     Active Substance: CARVEDILOL
     Indication: DIABETES MELLITUS
     Dosage: 1 TABLET, TWICE A DAY
     Route: 048
     Dates: start: 2006
  3. SOMALGIN [Concomitant]
     Active Substance: ASPIRIN\DIHYDROXYALUMINUM AMINOACETATE ANHYDROUS\MAGNESIUM CARBONATE
     Indication: DIABETES MELLITUS
     Dosage: TABLET A DAY
     Route: 048
     Dates: start: 2006
  4. VASTAREL [Concomitant]
     Active Substance: TRIMETAZIDINE DIHYDROCHLORIDE
     Indication: DIABETES MELLITUS
     Dosage: 1 TABLET, EVERY 12 HOURS
     Route: 048
     Dates: start: 2006
  5. CRESTOR [Concomitant]
     Active Substance: ROSUVASTATIN CALCIUM
     Indication: DIABETES MELLITUS
     Dosage: 1 TABLET A DAY
     Route: 048
     Dates: start: 2006
  6. JANUMET XR [Suspect]
     Active Substance: METFORMIN HYDROCHLORIDE\SITAGLIPTIN PHOSPHATE
     Indication: DIABETES MELLITUS
     Dosage: 1 TABLET, TWICE A DAY (BEFORE THE MAIN MEALS, LUNCH AND DINNER)
     Route: 048
     Dates: start: 201506
  7. CEDUR [Concomitant]
     Active Substance: BEZAFIBRATE
     Indication: DIABETES MELLITUS
     Dosage: 1 TABLET A DAY
     Route: 048
     Dates: start: 2006
  8. CLOPIDOGREL [Concomitant]
     Active Substance: CLOPIDOGREL BISULFATE
     Indication: DIABETES MELLITUS
     Dosage: 1 TABLET A DAY
     Route: 048
     Dates: start: 2006

REACTIONS (4)
  - Hip fracture [Recovered/Resolved]
  - Product use issue [Unknown]
  - Fall [Recovered/Resolved]
  - Rheumatic disorder [Not Recovered/Not Resolved]

NARRATIVE: CASE EVENT DATE: 201506
